FAERS Safety Report 6418564-5 (Version None)
Quarter: 2009Q4

REPORT INFORMATION
  Report Type: 
  Country: None (occurrence: None)
  Receive Date: 20091028
  Receipt Date: 20091019
  Transmission Date: 20100525
  Serious: Yes (Other)
  Sender: FDA-Public Use
  Company Number: US-SANOFI-SYNTHELABO-A03200904828

PATIENT
  Age: 45 Year
  Sex: Male

DRUGS (2)
  1. METOPROLOL [Concomitant]
     Indication: DRUG USE FOR UNKNOWN INDICATION
     Dosage: UNK
     Route: 065
  2. MULTAQ [Suspect]
     Indication: ATRIAL FIBRILLATION
     Route: 048
     Dates: start: 20090914, end: 20090919

REACTIONS (3)
  - CHEST PAIN [None]
  - PERICARDIAL EFFUSION [None]
  - PERICARDITIS [None]
